FAERS Safety Report 5960216-X (Version None)
Quarter: 2008Q4

REPORT INFORMATION
  Report Type: 
  Country: None (occurrence: None)
  Receive Date: 20081120
  Receipt Date: 20081114
  Transmission Date: 20090506
  Serious: Yes (Other)
  Sender: FDA-Public Use
  Company Number: US-ELI_LILLY_AND_COMPANY-US200811003381

PATIENT
  Age: 60 Year
  Sex: Female

DRUGS (7)
  1. BYETTA [Suspect]
     Indication: TYPE 2 DIABETES MELLITUS
     Dosage: 5 UG, 2/D
     Route: 058
     Dates: start: 20070101, end: 20070101
  2. BYETTA [Suspect]
     Dosage: 10 UG, 2/D
     Route: 058
     Dates: start: 20070101, end: 20080901
  3. METFORMIN HCL [Concomitant]
     Dosage: UNK, UNKNOWN
     Route: 065
  4. SIMVASTATIN [Concomitant]
     Dosage: UNK, UNKNOWN
     Route: 065
  5. LISINOPRIL [Concomitant]
     Dosage: UNK, UNKNOWN
     Route: 065
  6. HYDROCODONE BITARTRATE [Concomitant]
     Dosage: UNK, UNKNOWN
     Route: 065
  7. ASPIRIN [Concomitant]
     Dosage: UNK, UNKNOWN
     Route: 065

REACTIONS (2)
  - ABDOMINAL PAIN [None]
  - PANCREATITIS ACUTE [None]
